FAERS Safety Report 15706842 (Version 5)
Quarter: 2019Q2

REPORT INFORMATION
  Report Type: Spontaneous
  Country: US (occurrence: US)
  Receive Date: 20181210
  Receipt Date: 20190531
  Transmission Date: 20190711
  Serious: No
  Sender: FDA-Public Use
  Company Number: US-ACTELION-A-US2018-183104

PATIENT
  Age: 50 Year
  Sex: Male
  Weight: 80.27 kg

DRUGS (4)
  1. OPSUMIT [Suspect]
     Active Substance: MACITENTAN
     Indication: PULMONARY ARTERIAL HYPERTENSION
     Dosage: 10 MG, QD
     Route: 048
  2. REMODULIN [Concomitant]
     Active Substance: TREPROSTINIL
     Dosage: UNK
  3. AMLODIPINE [Concomitant]
     Active Substance: AMLODIPINE BESYLATE
  4. REMODULIN [Concomitant]
     Active Substance: TREPROSTINIL
     Dosage: 56 NG/KG, PER MIN

REACTIONS (8)
  - Catheter site erythema [Not Recovered/Not Resolved]
  - Headache [Unknown]
  - Dermatitis contact [Unknown]
  - Product dose omission [Unknown]
  - Joint swelling [Unknown]
  - Catheter site pain [Unknown]
  - Dyspnoea [Unknown]
  - Malaise [Unknown]

NARRATIVE: CASE EVENT DATE: 201901
